FAERS Safety Report 8785574 (Version 4)
Quarter: 2013Q3

REPORT INFORMATION
  Report Type: Report from Study
  Country: JP (occurrence: JP)
  Receive Date: 20120914
  Receipt Date: 20130703
  Transmission Date: 20140515
  Serious: Yes (Hospitalization, Other)
  Sender: FDA-Public Use
  Company Number: JP-009507513-1209JPN000703

PATIENT
  Age: 66 Year
  Sex: Male
  Weight: 68 kg

DRUGS (16)
  1. PEGINTRON [Suspect]
     Indication: CHRONIC HEPATITIS C
     Dosage: 1.5 MICROGRAM PER KILOGRAM, UNK
     Route: 058
     Dates: start: 20120612, end: 20120819
  2. PEGINTRON [Suspect]
     Dosage: UNK
     Route: 058
     Dates: start: 20120904
  3. REBETOL [Suspect]
     Indication: CHRONIC HEPATITIS C
     Dosage: 800 MG, UNK
     Route: 048
     Dates: start: 20120612, end: 20120703
  4. REBETOL [Suspect]
     Dosage: 400 MG, UNK
     Route: 048
     Dates: start: 20120703, end: 20120717
  5. REBETOL [Suspect]
     Dosage: 200 MG, UNK
     Route: 048
     Dates: start: 20120717, end: 20120819
  6. REBETOL [Suspect]
     Dosage: UNK
     Route: 048
     Dates: start: 20120904
  7. TELAVIC [Suspect]
     Indication: CHRONIC HEPATITIS C
     Dosage: 2250 MG QD
     Route: 048
     Dates: start: 20120612, end: 20120819
  8. URSO [Concomitant]
     Indication: CHRONIC HEPATITIS C
     Dosage: 600 MG,  FORMULATION: POR
     Route: 048
     Dates: end: 20120819
  9. DEPAS [Concomitant]
     Indication: INSOMNIA
     Dosage: 1.0 MG, UNK
     Route: 048
  10. RIZE [Concomitant]
     Indication: ANXIETY DISORDER
     Dosage: 5 MG, UNK
     Route: 048
  11. PARIET [Concomitant]
     Indication: GASTROOESOPHAGEAL REFLUX DISEASE
     Dosage: 10 MG, QD, FORMULATION: POR
     Route: 048
     Dates: end: 20120819
  12. CALBLOCK [Concomitant]
     Indication: HYPERTENSION
     Dosage: 8 MG, QD; FORMULATION :POR
     Route: 048
  13. MICARDIS [Concomitant]
     Indication: HYPERTENSION
     Dosage: 40 MG, UNK; FORMULATION: POR
     Route: 048
  14. HORMONES (UNSPECIFIED) [Concomitant]
     Indication: DIABETES MELLITUS
     Dosage: 14 DF, QD
     Route: 058
  15. HUMALOG MIX [Concomitant]
     Indication: DIABETES MELLITUS
     Dosage: 8 DF, UNK
     Route: 058
  16. EKSALB [Concomitant]
     Indication: VULVITIS
     Dosage: 5 G, UNK
     Route: 051
     Dates: start: 20120626, end: 20120703

REACTIONS (2)
  - Drug eruption [Recovering/Resolving]
  - Delirium [Recovered/Resolved]
